FAERS Safety Report 19058522 (Version 1)
Quarter: 2021Q1

REPORT INFORMATION
  Report Type: Spontaneous
  Country: US (occurrence: US)
  Receive Date: 20210325
  Receipt Date: 20210325
  Transmission Date: 20210420
  Serious: No
  Sender: FDA-Public Use
  Company Number: US-MYLANLABS-2021M1016110

PATIENT
  Sex: Female

DRUGS (1)
  1. CLONIDINE TRANSDERMAL SYSTEM [Suspect]
     Active Substance: CLONIDINE
     Indication: PRODUCT USED FOR UNKNOWN INDICATION
     Dosage: 1 PATCH A WEEK
     Route: 062

REACTIONS (4)
  - Product quality issue [Not Recovered/Not Resolved]
  - Product appearance confusion [Not Recovered/Not Resolved]
  - Product use complaint [Not Recovered/Not Resolved]
  - Incorrect dosage administered [Not Recovered/Not Resolved]
